FAERS Safety Report 23983278 (Version 2)
Quarter: 2024Q3

REPORT INFORMATION
  Report Type: Spontaneous
  Country: IT (occurrence: IT)
  Receive Date: 20240617
  Receipt Date: 20240705
  Transmission Date: 20241017
  Serious: Yes (Other)
  Sender: BOEHRINGER INGELHEIM
  Company Number: IT-BoehringerIngelheim-2024-BI-034167

PATIENT
  Sex: Female
  Weight: 70 kg

DRUGS (3)
  1. PRAXBIND [Suspect]
     Active Substance: IDARUCIZUMAB
     Indication: Gastrointestinal haemorrhage
     Dosage: 2 VIALS OF PRAXBIND (FIRST DOSE)
     Dates: start: 20240610
  2. PRAXBIND [Suspect]
     Active Substance: IDARUCIZUMAB
     Indication: Haemodynamic instability
     Dosage: 2 VIALS OF PRAXBIND (5 GRAMS) ADMINISTERED AFTER 6 HOURS FROM THE FIRST DOSE
     Dates: start: 20240610
  3. PRAXBIND [Suspect]
     Active Substance: IDARUCIZUMAB
     Indication: Overdose

REACTIONS (2)
  - Gastrointestinal haemorrhage [Not Recovered/Not Resolved]
  - Haemodynamic instability [Not Recovered/Not Resolved]
